FAERS Safety Report 10503577 (Version 2)
Quarter: 2014Q4

REPORT INFORMATION
  Report Type: Spontaneous
  Country: IT (occurrence: None)
  Receive Date: 20141003
  Receipt Date: 20141015
  Transmission Date: 20150528
  Serious: Yes (Hospitalization)
  Sender: FDA-Public Use
  Company Number: IT-017176

PATIENT
  Age: 78 Year
  Sex: Male

DRUGS (12)
  1. LASIX [Suspect]
     Active Substance: FUROSEMIDE
     Indication: PRODUCT USED FOR UNKNOWN INDICATION
     Route: 048
     Dates: start: 20140101, end: 20140719
  2. PROSCAR [Concomitant]
     Active Substance: FINASTERIDE
  3. MINIRIN [Suspect]
     Active Substance: DESMOPRESSIN ACETATE
     Indication: NOCTURIA
     Dosage: 2 DOSAGE FORMS DAILY NASAL
     Route: 045
     Dates: start: 20140101, end: 20140719
  4. DELTACORTENE [Concomitant]
     Active Substance: PREDNISONE
  5. OMNIC [Concomitant]
     Active Substance: TAMSULOSIN HYDROCHLORIDE
  6. VENITRIN [Concomitant]
     Active Substance: NITROGLYCERIN
  7. MICTONORM [Concomitant]
     Active Substance: PROPIVERINE HYDROCHLORIDE
  8. FOLINA [Concomitant]
     Active Substance: FOLIC ACID
  9. PLAVIX [Concomitant]
     Active Substance: CLOPIDOGREL BISULFATE
  10. ELOPRAM [Suspect]
     Active Substance: CITALOPRAM HYDROBROMIDE
     Indication: PRODUCT USED FOR UNKNOWN INDICATION
     Dosage: 8 DOSAGE FORMS DAILY
     Route: 048
     Dates: start: 20140101, end: 20140719
  11. BISOPROLOL HEMIFUMARATE [Concomitant]
     Active Substance: BISOPROLOL FUMARATE
  12. METFORAL [Concomitant]
     Active Substance: METFORMIN HYDROCHLORIDE

REACTIONS (2)
  - Hypokalaemia [None]
  - Hyponatraemia [None]

NARRATIVE: CASE EVENT DATE: 20140718
